FAERS Safety Report 22027203 (Version 1)
Quarter: 2023Q1

REPORT INFORMATION
  Report Type: Spontaneous
  Country: US (occurrence: US)
  Receive Date: 20230223
  Receipt Date: 20230223
  Transmission Date: 20230418
  Serious: No
  Sender: FDA-Public Use
  Company Number: US-MORPHOSYS US-2022-MOR002402-US

PATIENT

DRUGS (1)
  1. MONJUVI [Suspect]
     Active Substance: TAFASITAMAB-CXIX
     Indication: Follicular lymphoma

REACTIONS (2)
  - Therapy change [Unknown]
  - Off label use [Unknown]
